FAERS Safety Report 25909913 (Version 1)
Quarter: 2025Q4

REPORT INFORMATION
  Report Type: Spontaneous
  Country: US (occurrence: US)
  Receive Date: 20251012
  Receipt Date: 20251012
  Transmission Date: 20260118
  Serious: No
  Sender: GALDERMA
  Company Number: US-GALDERMA-US2025018168

PATIENT

DRUGS (1)
  1. NEMLUVIO [Suspect]
     Active Substance: NEMOLIZUMAB-ILTO
     Indication: Dermatitis atopic
     Dosage: UNK
     Route: 058
     Dates: start: 20250617, end: 20250617

REACTIONS (3)
  - Rash papular [Recovering/Resolving]
  - Hypersensitivity [Recovering/Resolving]
  - Miliaria [Recovering/Resolving]

NARRATIVE: CASE EVENT DATE: 20250701
